FAERS Safety Report 12592802 (Version 3)
Quarter: 2016Q3

REPORT INFORMATION
  Report Type: Spontaneous
  Country: GB (occurrence: GB)
  Receive Date: 20160726
  Receipt Date: 20160907
  Transmission Date: 20161109
  Serious: Yes (Life-Threatening)
  Sender: FDA-Public Use
  Company Number: GB-JNJFOC-20160714755

PATIENT
  Age: 59 Year
  Sex: Female

DRUGS (3)
  1. IRON [Concomitant]
     Active Substance: IRON
     Indication: PRODUCT USED FOR UNKNOWN INDICATION
     Route: 065
  2. CODIPAR [Suspect]
     Active Substance: ACETAMINOPHEN\CODEINE PHOSPHATE
     Indication: ARTHRALGIA
     Dosage: 1 (UNIT UNSPECIFIED)
     Route: 065
  3. COCODAMOL [Suspect]
     Active Substance: ACETAMINOPHEN\CODEINE PHOSPHATE
     Indication: PRODUCT USED FOR UNKNOWN INDICATION
     Dosage: 2 TABLETS UP TO 4 TIMES A DAY
     Route: 065

REACTIONS (23)
  - Muscle contracture [Unknown]
  - Pruritus generalised [Unknown]
  - Apparent death [Unknown]
  - Discomfort [Unknown]
  - Musculoskeletal stiffness [Unknown]
  - Insomnia [Unknown]
  - Cardiac arrest [Unknown]
  - Fatigue [Unknown]
  - Feeling abnormal [Unknown]
  - Hyperhidrosis [Unknown]
  - Bone pain [Unknown]
  - Ear discomfort [Unknown]
  - Feeling hot [Unknown]
  - Muscle spasms [Unknown]
  - Dry throat [Unknown]
  - Pain [Unknown]
  - Dyspnoea [Unknown]
  - Back pain [Unknown]
  - Dry mouth [Unknown]
  - Drug ineffective [Unknown]
  - Oropharyngeal pain [Unknown]
  - Asthenia [Not Recovered/Not Resolved]
  - Balance disorder [Unknown]
